FAERS Safety Report 25391722 (Version 1)
Quarter: 2025Q2

REPORT INFORMATION
  Report Type: Spontaneous
  Country: US (occurrence: US)
  Receive Date: 20250603
  Receipt Date: 20250603
  Transmission Date: 20250717
  Serious: No
  Sender: JOHNSON AND JOHNSON
  Company Number: US-VIIV HEALTHCARE-US2025064089

PATIENT
  Age: 38 Year
  Sex: Male

DRUGS (2)
  1. RILPIVIRINE [Suspect]
     Active Substance: RILPIVIRINE
     Indication: HIV infection
     Route: 065
     Dates: start: 202410, end: 20250520
  2. CABOTEGRAVIR [Suspect]
     Active Substance: CABOTEGRAVIR
     Indication: HIV infection
     Route: 065
     Dates: start: 202410, end: 20250520

REACTIONS (2)
  - Viral load increased [Recovering/Resolving]
  - Product use in unapproved therapeutic environment [Unknown]

NARRATIVE: CASE EVENT DATE: 20250508
